FAERS Safety Report 4510162-3 (Version None)
Quarter: 2004Q4

REPORT INFORMATION
  Report Type: 
  Country: None (occurrence: None)
  Receive Date: 20041119
  Receipt Date: 20041109
  Transmission Date: 20050328
  Serious: Yes (Other)
  Sender: FDA-Public Use
  Company Number: SUSI-2004-00729

PATIENT
  Sex: Male

DRUGS (1)
  1. PENTASA [Suspect]
     Indication: CROHN'S DISEASE
     Dosage: 2 G, 2X/DAY:BID, ORAL
     Route: 048
     Dates: start: 20020401, end: 20040901

REACTIONS (3)
  - NEPHRITIS INTERSTITIAL [None]
  - RENAL ATROPHY [None]
  - RENAL FAILURE CHRONIC [None]
